FAERS Safety Report 14349015 (Version 1)
Quarter: 2018Q1

REPORT INFORMATION
  Report Type: Spontaneous
  Country: US (occurrence: US)
  Receive Date: 20180104
  Receipt Date: 20180104
  Transmission Date: 20180509
  Serious: No
  Sender: FDA-Public Use
  Company Number: US-EMD SERONO-7017043

PATIENT
  Sex: Female

DRUGS (1)
  1. REBIF [Suspect]
     Active Substance: INTERFERON BETA-1A
     Indication: MULTIPLE SCLEROSIS
     Route: 058
     Dates: start: 20100526

REACTIONS (4)
  - Pain [Recovering/Resolving]
  - Sleep disorder [Recovering/Resolving]
  - Injection site pain [Not Recovered/Not Resolved]
  - Multiple sclerosis [Not Recovered/Not Resolved]
